FAERS Safety Report 5225451-7 (Version None)
Quarter: 2007Q1

REPORT INFORMATION
  Report Type: 
  Country: None (occurrence: None)
  Receive Date: 20061201
  Receipt Date: 20060821
  Transmission Date: 20070707
  Serious: No
  Sender: FDA-Public Use
  Company Number: US200608004549

PATIENT
  Sex: Female

DRUGS (4)
  1. CYMBALTA [Suspect]
     Indication: DEPRESSION
     Dates: start: 20060101, end: 20060101
  2. PROTONIX [Concomitant]
  3. VITAMINS NOS (VITAMINS NOS) [Concomitant]
  4. IBANDRONATE SODIUM (IBANDRONATE SODIUM) [Concomitant]

REACTIONS (2)
  - ORAL MUCOSAL BLISTERING [None]
  - SWOLLEN TONGUE [None]
